FAERS Safety Report 6618977-2 (Version None)
Quarter: 2010Q1

REPORT INFORMATION
  Report Type: 
  Country: None (occurrence: None)
  Receive Date: 20100308
  Receipt Date: 20100223
  Transmission Date: 20100710
  Serious: Yes (Other)
  Sender: FDA-Public Use
  Company Number: PHHY2010US11346

PATIENT
  Sex: Male

DRUGS (3)
  1. DIOVAN [Suspect]
     Dosage: 160 MG, DAILY
  2. DIOVAN HCT [Suspect]
     Dosage: 160/25 MG, DAILY
  3. DIOVAN HCT [Suspect]
     Dosage: 320/25 MG

REACTIONS (2)
  - DRUG ADMINISTRATION ERROR [None]
  - PANIC ATTACK [None]
